FAERS Safety Report 7818775-8 (Version None)
Quarter: 2011Q4

REPORT INFORMATION
  Report Type: 
  Country: None (occurrence: None)
  Receive Date: 20111018
  Receipt Date: 20111010
  Transmission Date: 20120403
  Serious: No
  Sender: FDA-Public Use
  Company Number: US-BIOGENIDEC-2011BI038654

PATIENT
  Age: 44 Year
  Sex: Female

DRUGS (3)
  1. TYSABRI [Suspect]
     Indication: MULTIPLE SCLEROSIS
     Route: 042
     Dates: start: 20111004
  2. TYSABRI [Suspect]
     Route: 042
     Dates: start: 20070516, end: 20081105
  3. TYSABRI [Suspect]
     Route: 042
     Dates: start: 20090916, end: 20100921

REACTIONS (2)
  - POOR VENOUS ACCESS [None]
  - VEIN DISORDER [None]
